FAERS Safety Report 15011643 (Version 1)
Quarter: 2018Q2

REPORT INFORMATION
  Report Type: Spontaneous
  Country: JP (occurrence: JP)
  Receive Date: 20180614
  Receipt Date: 20180614
  Transmission Date: 20180711
  Serious: Yes (Hospitalization)
  Sender: FDA-Public Use
  Company Number: JP-GLAXOSMITHKLINE-JP2018JPN046023

PATIENT
  Age: 14 Year
  Sex: Female

DRUGS (2)
  1. MEIACT [Concomitant]
     Active Substance: CEFDITOREN PIVOXIL
     Dosage: UNK
  2. LAMICTAL [Suspect]
     Active Substance: LAMOTRIGINE
     Indication: EPILEPSY
     Dosage: 10 MG, QD
     Route: 048
     Dates: start: 20180306, end: 20180319

REACTIONS (3)
  - Drug eruption [Recovered/Resolved]
  - Pyrexia [Recovered/Resolved]
  - White blood cell count decreased [Recovered/Resolved]

NARRATIVE: CASE EVENT DATE: 2018
